FAERS Safety Report 5805739-9 (Version None)
Quarter: 2008Q3

REPORT INFORMATION
  Report Type: 
  Country: None (occurrence: None)
  Receive Date: 20080702
  Receipt Date: 20070216
  Transmission Date: 20090109
  Serious: Yes (Hospitalization)
  Sender: FDA-Public Use
  Company Number: 2006-BP-02487BP

PATIENT
  Age: 53 Year
  Sex: Male

DRUGS (26)
  1. MIRAPEX [Suspect]
     Indication: PARKINSON'S DISEASE
     Dosage: 0.25 MG (0.125 MG,2 IN 1 D),PO
     Route: 048
     Dates: start: 19981001, end: 20051101
  2. MIRAPEX [Suspect]
     Indication: RESTLESS LEGS SYNDROME
     Dosage: 0.25 MG (0.125 MG,2 IN 1 D),PO
     Route: 048
     Dates: start: 19981001, end: 20051101
  3. SINEMET [Suspect]
     Indication: PARKINSON'S DISEASE
     Dosage: SEE TEXT (SEE TEXT,25/100 1 TAB DAILY; 1 TAB TID),PO
     Route: 048
     Dates: start: 20040101, end: 20050101
  4. REQUIP [Suspect]
     Indication: PARKINSON'S DISEASE
     Dosage: 9 MG (3 MG,3 IN 1 D),PO
     Route: 048
     Dates: start: 20050801
  5. PRAVACHOL [Concomitant]
  6. MONOPRIL [Concomitant]
  7. LOPRESSOR [Concomitant]
  8. ASCORBIC ACID [Concomitant]
  9. LIPITOR [Concomitant]
  10. ZESTRIL [Concomitant]
  11. ASCORBIC ACID [Concomitant]
  12. ATACAND [Concomitant]
  13. DIOVAN [Concomitant]
  14. FLUZONE [Concomitant]
  15. IBUPROFEN [Concomitant]
  16. FLUOXETINE (FLUOXETINE) (KA) [Concomitant]
  17. RISPERDAL [Concomitant]
  18. LASIX [Concomitant]
  19. FOLIC ACID [Concomitant]
  20. VITAMIN E [Concomitant]
  21. NITROGLYCERIN [Concomitant]
  22. ASPIRIN [Concomitant]
  23. QUESTRAN [Concomitant]
  24. NITROSTAT [Concomitant]
  25. NITROQUICK (GLYCERYL TRINITRATE) [Concomitant]
  26. VIAGRA [Concomitant]

REACTIONS (6)
  - ANXIETY [None]
  - DEPRESSION [None]
  - HALLUCINATION [None]
  - OBSESSIVE-COMPULSIVE DISORDER [None]
  - PATHOLOGICAL GAMBLING [None]
  - SUICIDAL IDEATION [None]
